FAERS Safety Report 16024110 (Version 1)
Quarter: 2019Q1

REPORT INFORMATION
  Report Type: Spontaneous
  Country: US (occurrence: US)
  Receive Date: 20190301
  Receipt Date: 20190301
  Transmission Date: 20190418
  Serious: Yes (Other)
  Sender: FDA-Public Use
  Company Number: US-PFIZER INC-2019080335

PATIENT
  Sex: Female

DRUGS (2)
  1. METHOTREXATE SODIUM. [Suspect]
     Active Substance: METHOTREXATE SODIUM
     Dosage: UNK
     Dates: end: 20170926
  2. METHOTREXATE SODIUM. [Suspect]
     Active Substance: METHOTREXATE SODIUM
     Dosage: UNK
     Dates: end: 20180926

REACTIONS (7)
  - Lipoma [Unknown]
  - Neuropathy peripheral [Not Recovered/Not Resolved]
  - Bronchitis chronic [Unknown]
  - Cough [Not Recovered/Not Resolved]
  - Neoplasm [Unknown]
  - Incontinence [Unknown]
  - Otorrhoea [Unknown]
